FAERS Safety Report 7755488-5 (Version None)
Quarter: 2011Q3

REPORT INFORMATION
  Report Type: 
  Country: None (occurrence: None)
  Receive Date: 20110916
  Receipt Date: 20110912
  Transmission Date: 20111222
  Serious: Yes (Other)
  Sender: FDA-Public Use
  Company Number: US-PFIZER INC-2011192526

PATIENT
  Sex: Female
  Weight: 79.819 kg

DRUGS (6)
  1. VICODIN [Concomitant]
     Dosage: 500 MG, AS NEEDED
  2. PROMETHAZINE [Concomitant]
     Dosage: 12.5MG
  3. FAMCICLOVIR [Concomitant]
     Dosage: UNK
  4. LYRICA [Suspect]
     Indication: NEURALGIA
     Dosage: 50 MG, 3X/DAY
     Route: 048
     Dates: start: 20110816, end: 20110818
  5. ULTRAM [Concomitant]
     Indication: PAIN
     Dosage: 50 MG, AS NEEDED
     Dates: start: 20110816
  6. DYAZIDE [Concomitant]
     Indication: HYPERTENSION
     Dosage: 75/50 QDAY
     Dates: start: 20110525

REACTIONS (8)
  - VERTIGO [None]
  - HERPES ZOSTER [None]
  - ASTHENIA [None]
  - ABASIA [None]
  - MUSCULAR WEAKNESS [None]
  - ABDOMINAL PAIN UPPER [None]
  - BALANCE DISORDER [None]
  - MYOPATHY [None]
